FAERS Safety Report 17362698 (Version 1)
Quarter: 2020Q1

REPORT INFORMATION
  Report Type: Spontaneous
  Country: US (occurrence: US)
  Receive Date: 20200202
  Receipt Date: 20200202
  Transmission Date: 20200409
  Serious: Yes (Other)
  Sender: FDA-Public Use
  Company Number: None

PATIENT
  Age: 76 Year
  Sex: Female

DRUGS (2)
  1. MAJOR AMMONIUM LACTATE 12%,140 G [Suspect]
     Active Substance: AMMONIUM LACTATE
     Indication: DRY SKIN
     Dates: start: 20191104, end: 20200202
  2. CERAVE MOISTURIZING CREAM 19 OZ [COSMETICS] [Suspect]
     Active Substance: COSMETICS

REACTIONS (4)
  - Insomnia [None]
  - Pustule [None]
  - Rash [None]
  - Pruritus [None]

NARRATIVE: CASE EVENT DATE: 20200116
